FAERS Safety Report 16446764 (Version 1)
Quarter: 2019Q2

REPORT INFORMATION
  Report Type: Spontaneous
  Country: HR (occurrence: HR)
  Receive Date: 20190618
  Receipt Date: 20190618
  Transmission Date: 20190711
  Serious: Yes (Other)
  Sender: FDA-Public Use
  Company Number: HR-PFIZER INC-2019252980

PATIENT
  Sex: Female

DRUGS (2)
  1. NORVASC [Suspect]
     Active Substance: AMLODIPINE BESYLATE
     Dosage: 300 MG, UNK (60 PCS X 5 MG)
     Route: 048
     Dates: start: 20190326, end: 20190326
  2. IRUZID (HYDROCHLOROTHIAZIDE/LISINOPRIL DIHYDRATE) [Suspect]
     Active Substance: HYDROCHLOROTHIAZIDE\LISINOPRIL
     Dosage: 30 DF, UNK (30 PCS (10 + 12.5))
     Route: 048
     Dates: start: 20190326, end: 20190326

REACTIONS (5)
  - Intentional overdose [Unknown]
  - Suicide attempt [Unknown]
  - Nausea [Unknown]
  - Blood pressure abnormal [Unknown]
  - Toxicity to various agents [Unknown]

NARRATIVE: CASE EVENT DATE: 20190326
